FAERS Safety Report 11058950 (Version 3)
Quarter: 2015Q3

REPORT INFORMATION
  Report Type: Spontaneous
  Country: JP (occurrence: JP)
  Receive Date: 20150423
  Receipt Date: 20150722
  Transmission Date: 20151125
  Serious: Yes (Hospitalization, Other)
  Sender: FDA-Public Use
  Company Number: JP-GSKJP-JP2015JPN051360AA

PATIENT
  Age: 50 Year
  Sex: Male

DRUGS (1)
  1. REVOLADE [Suspect]
     Active Substance: ELTROMBOPAG
     Indication: IMMUNE THROMBOCYTOPENIC PURPURA
     Dosage: 50 MG, 1D
     Route: 048
     Dates: start: 20110507

REACTIONS (5)
  - Embolism arterial [Recovering/Resolving]
  - Cerebral thrombosis [Recovering/Resolving]
  - Cerebral venous thrombosis [Recovering/Resolving]
  - Myocardial infarction [Recovering/Resolving]
  - Embolism venous [Recovering/Resolving]

NARRATIVE: CASE EVENT DATE: 20140706
